FAERS Safety Report 5972419-9 (Version None)
Quarter: 2008Q4

REPORT INFORMATION
  Report Type: 
  Country: None (occurrence: None)
  Receive Date: 20081201
  Receipt Date: 20081027
  Transmission Date: 20090506
  Serious: No
  Sender: FDA-Public Use
  Company Number: US-BAYER-200832272NA

PATIENT
  Age: 66 Year
  Sex: Male
  Weight: 104 kg

DRUGS (8)
  1. LEVITRA [Suspect]
     Indication: PROSTATOMEGALY
     Dosage: TOTAL DAILY DOSE: 20 MG  UNIT DOSE: 20 MG
     Dates: start: 20080824, end: 20080824
  2. IBUPROFEN TABLETS [Concomitant]
  3. METHOCARBAMOL [Concomitant]
  4. TAMSULOSIN HCL [Concomitant]
  5. SIMVASTATIN [Concomitant]
  6. ATROVENT [Concomitant]
  7. XOPENEX [Concomitant]
  8. ALBUTEROL [Concomitant]

REACTIONS (15)
  - BURNING SENSATION [None]
  - CHILLS [None]
  - CHOKING SENSATION [None]
  - CHRONIC OBSTRUCTIVE PULMONARY DISEASE [None]
  - DEPRESSION [None]
  - DIZZINESS [None]
  - FEAR [None]
  - FEELING OF BODY TEMPERATURE CHANGE [None]
  - FLASHBACK [None]
  - FLUSHING [None]
  - HEADACHE [None]
  - HYPERHIDROSIS [None]
  - INSOMNIA [None]
  - NAUSEA [None]
  - THROAT TIGHTNESS [None]
